FAERS Safety Report 21342460 (Version 5)
Quarter: 2022Q4

REPORT INFORMATION
  Report Type: Spontaneous
  Country: US (occurrence: US)
  Receive Date: 20220916
  Receipt Date: 20221220
  Transmission Date: 20230113
  Serious: Yes (Hospitalization)
  Sender: FDA-Public Use
  Company Number: US-PFIZER INC-PV202200063082

PATIENT
  Age: 66 Year
  Sex: Male

DRUGS (1)
  1. INLYTA [Suspect]
     Active Substance: AXITINIB
     Dosage: UNK

REACTIONS (11)
  - Hypertension [Unknown]
  - Visual impairment [Unknown]
  - Eye irritation [Unknown]
  - Stomatitis [Unknown]
  - Vision blurred [Unknown]
  - Feeling abnormal [Unknown]
  - Dizziness [Unknown]
  - Fatigue [Unknown]
  - Nail discolouration [Unknown]
  - Malaise [Unknown]
  - Nocturia [Unknown]
